FAERS Safety Report 7429982-0 (Version None)
Quarter: 2011Q2

REPORT INFORMATION
  Report Type: 
  Country: None (occurrence: None)
  Receive Date: 20110421
  Receipt Date: 20110419
  Transmission Date: 20111010
  Serious: Yes (Other)
  Sender: FDA-Public Use
  Company Number: US-PFIZER INC-2011001187

PATIENT
  Sex: Male
  Weight: 53.061 kg

DRUGS (2)
  1. CHANTIX [Suspect]
     Indication: SMOKING CESSATION THERAPY
     Dosage: 0.5 MG, 1X/DAY
     Dates: start: 20101216
  2. CHANTIX [Suspect]
     Dosage: UNK
     Route: 048

REACTIONS (4)
  - HOSTILITY [None]
  - BACK INJURY [None]
  - GAIT DISTURBANCE [None]
  - EMPHYSEMA [None]
